FAERS Safety Report 24941397 (Version 2)
Quarter: 2025Q1

REPORT INFORMATION
  Report Type: Report from Study
  Country: US (occurrence: US)
  Receive Date: 20250207
  Receipt Date: 20250218
  Transmission Date: 20250409
  Serious: No
  Sender: ROCHE
  Company Number: US-ROCHE-10000196291

PATIENT
  Age: 58 Year
  Sex: Female
  Weight: 73.48 kg

DRUGS (13)
  1. OCREVUS [Suspect]
     Active Substance: OCRELIZUMAB
     Indication: Relapsing-remitting multiple sclerosis
     Dosage: STARTED ABOUT 5 TO 6 YEARS AGO
     Route: 040
  2. OCREVUS [Suspect]
     Active Substance: OCRELIZUMAB
     Route: 040
     Dates: start: 2017
  3. CARBIDOPA AND LEVODOPA [Concomitant]
     Active Substance: CARBIDOPA\LEVODOPA
     Indication: Restless legs syndrome
     Dosage: TAKES 4 TABLETS AT NIGHT ONCE A DAY. CONTAINS 25 MG CARBIDOPA  /  100 MG LEVODOPA PER TABLET
     Route: 048
     Dates: end: 2024
  4. CARBIDOPA AND LEVODOPA [Concomitant]
     Active Substance: CARBIDOPA\LEVODOPA
     Dosage: TAKES 3 TABLETS ONCE A DAY AT NIGHT. CONTAINS 25 MG CARBIDOPA  /  100 MG LEVODOPA PER TABLET
     Route: 048
     Dates: start: 2024
  5. PSEUDOEPHEDRINE [Concomitant]
     Active Substance: PSEUDOEPHEDRINE
     Dosage: TAKES AS NEEDED
     Route: 048
     Dates: start: 20241112
  6. ALBUTEROL [Concomitant]
     Active Substance: ALBUTEROL
     Indication: Asthma
     Dosage: TAKES AS NEEDED.
     Route: 055
  7. ALBUTEROL SULFATE [Concomitant]
     Active Substance: ALBUTEROL SULFATE
     Indication: Asthma
     Dosage: TAKES AS NEEDED.
     Route: 055
  8. FLUTICASONE [Concomitant]
     Active Substance: FLUTICASONE
     Dosage: TAKES AS NEEDED.
     Route: 045
  9. SODIUM CHLORIDE [Concomitant]
     Active Substance: SODIUM CHLORIDE
     Route: 045
  10. MAGNESIUM [Concomitant]
     Active Substance: MAGNESIUM
     Dosage: TAKES IN EVENING.
     Route: 048
     Dates: start: 2020
  11. ZINC [Concomitant]
     Active Substance: ZINC
     Route: 048
     Dates: start: 2020
  12. VITAMIN D NOS [Concomitant]
     Active Substance: CHOLECALCIFEROL\ERGOCALCIFEROL
     Indication: Multiple sclerosis
     Route: 048
  13. SOLU-MEDROL [Concomitant]
     Active Substance: METHYLPREDNISOLONE SODIUM SUCCINATE

REACTIONS (10)
  - Diverticulum intestinal [Not Recovered/Not Resolved]
  - Oesophageal stenosis [Not Recovered/Not Resolved]
  - Headache [Recovered/Resolved]
  - COVID-19 [Not Recovered/Not Resolved]
  - Vitamin D decreased [Recovered/Resolved]
  - Dysphagia [Recovered/Resolved]
  - Alopecia [Recovering/Resolving]
  - Globulins decreased [Unknown]
  - Blood albumin increased [Unknown]
  - Incorrect route of product administration [Unknown]

NARRATIVE: CASE EVENT DATE: 20200601
